FAERS Safety Report 11736676 (Version 1)
Quarter: 2015Q4

REPORT INFORMATION
  Report Type: Spontaneous
  Country: US (occurrence: US)
  Receive Date: 20151113
  Receipt Date: 20151113
  Transmission Date: 20160304
  Serious: No
  Sender: FDA-Public Use
  Company Number: US-JNJFOC-20150907500

PATIENT
  Age: 80 Year
  Sex: Female
  Weight: 67.13 kg

DRUGS (2)
  1. IMODIUM A-D [Suspect]
     Active Substance: LOPERAMIDE HYDROCHLORIDE
     Route: 048
  2. IMODIUM A-D [Suspect]
     Active Substance: LOPERAMIDE HYDROCHLORIDE
     Indication: ANTIDIARRHOEAL SUPPORTIVE CARE
     Dosage: 1 1/2 TSP
     Route: 048

REACTIONS (4)
  - Product contamination physical [Unknown]
  - Product use issue [Unknown]
  - Incorrect dose administered [Unknown]
  - Off label use [Unknown]

NARRATIVE: CASE EVENT DATE: 20150909
